FAERS Safety Report 11005011 (Version 2)
Quarter: 2015Q2

REPORT INFORMATION
  Report Type: Spontaneous
  Country: US (occurrence: US)
  Receive Date: 20150409
  Receipt Date: 20150410
  Transmission Date: 20150821
  Serious: No
  Sender: FDA-Public Use
  Company Number: US-ASTRAZENECA-2015SE29691

PATIENT
  Sex: Female

DRUGS (5)
  1. AEROCHAMBER [Concomitant]
     Active Substance: DEVICE
  2. BP MEDS [Concomitant]
  3. GENERIC PRILOSEC OMEPRAZOLE [Concomitant]
  4. TOPICAL CREAMS [Concomitant]
     Active Substance: UNSPECIFIED INGREDIENT
  5. SYMBICORT [Suspect]
     Active Substance: BUDESONIDE\FORMOTEROL FUMARATE DIHYDRATE
     Dosage: 2 PUFFS BID
     Route: 055

REACTIONS (1)
  - Intentional overdose [Unknown]
